FAERS Safety Report 22074866 (Version 2)
Quarter: 2023Q2

REPORT INFORMATION
  Report Type: Spontaneous
  Country: RU (occurrence: RU)
  Receive Date: 20230308
  Receipt Date: 20230609
  Transmission Date: 20230721
  Serious: Yes (Death, Other)
  Sender: FDA-Public Use
  Company Number: RU-JNJFOC-20230242310

PATIENT
  Age: 72 Year
  Sex: Male
  Weight: 102 kg

DRUGS (2)
  1. DARZALEX [Suspect]
     Active Substance: DARATUMUMAB
     Indication: Plasma cell myeloma
     Dosage: 8 CYCLES PLANNED, 2 CYCLES OF THERAPY RECEIVED
     Route: 065
     Dates: start: 202005, end: 202007
  2. IPRATEROL AERONATIV [Concomitant]
     Indication: Product used for unknown indication
     Route: 065

REACTIONS (4)
  - Death [Fatal]
  - COVID-19 pneumonia [Unknown]
  - Asthma [Unknown]
  - Adverse event [Unknown]

NARRATIVE: CASE EVENT DATE: 20200501
